FAERS Safety Report 20218996 (Version 1)
Quarter: 2021Q4

REPORT INFORMATION
  Report Type: Spontaneous
  Country: US (occurrence: US)
  Receive Date: 20211222
  Receipt Date: 20211222
  Transmission Date: 20220303
  Serious: No
  Sender: FDA-Public Use
  Company Number: US-BIOHAVEN PHARMACEUTICALS-2021BHV01116

PATIENT
  Age: 66 Year
  Sex: Male
  Weight: 79.365 kg

DRUGS (5)
  1. NURTEC ODT [Suspect]
     Active Substance: RIMEGEPANT SULFATE
     Dosage: 75 MG, 1X/DAY?TREATMENT START STOP DATE:03-05-21//
     Route: 048
     Dates: start: 20210503
  2. NORTRIPTYLINE [Suspect]
     Active Substance: NORTRIPTYLINE
     Dosage: UNK UNK, 1X/DAY AT BEDTIME?TREATMENT START STOP DATE:03-05-21//
  3. ZIPSOR [Suspect]
     Active Substance: DICLOFENAC POTASSIUM
     Dosage: UNK?TREATMENT START STOP DATE:03-05-21//
  4. AJOVY [Suspect]
     Active Substance: FREMANEZUMAB-VFRM
     Dosage: UNK?TREATMENT START STOP DATE:03-05-21//
  5. UBRELVY [Concomitant]
     Active Substance: UBROGEPANT
     Dosage: UNK?TREATMENT START STOP DATE:03-05-21//

REACTIONS (5)
  - Therapeutic product effect incomplete [Not Recovered/Not Resolved]
  - Hangover [Not Recovered/Not Resolved]
  - Headache [Not Recovered/Not Resolved]
  - Tension headache [Not Recovered/Not Resolved]
  - Migraine [Not Recovered/Not Resolved]

NARRATIVE: CASE EVENT DATE: 20210101
